FAERS Safety Report 8593847-1 (Version None)
Quarter: 2012Q3

REPORT INFORMATION
  Report Type: 
  Country: None (occurrence: None)
  Receive Date: 20120814
  Receipt Date: 20120808
  Transmission Date: 20120928
  Serious: Yes (Other)
  Sender: FDA-Public Use
  Company Number: PHHY2012ZA069774

PATIENT
  Sex: Male

DRUGS (3)
  1. BISOPROLOL FUMARATE [Concomitant]
     Dosage: UNK UKN, UNK
  2. DIOVAN HCT [Suspect]
     Indication: HYPERTENSION
     Dosage: 1 DF, (80 MG VALS AND 12.5 MG HCT)
  3. CARBILEV [Concomitant]
     Dosage: UNK UKN, UNK

REACTIONS (2)
  - PROSTATE CANCER [None]
  - PARKINSON'S DISEASE [None]
